FAERS Safety Report 8796032 (Version 1)
Quarter: 2012Q4

REPORT INFORMATION
  Report Type: 
  Country: US (occurrence: US)
  Receive Date: 20120920
  Receipt Date: 20120920
  Transmission Date: 20130627
  Serious: No
  Sender: FDA-Public Use
  Company Number: US-009507513-1209USA004811

PATIENT
  Sex: Female

DRUGS (2)
  1. MIRALAX [Suspect]
     Indication: PRODUCT USED FOR UNKNOWN INDICATION
     Dosage: UNK, Unknown
     Route: 048
     Dates: start: 2011
  2. VITAMINS (UNSPECIFIED) [Concomitant]
     Indication: PRODUCT USED FOR UNKNOWN INDICATION
     Dosage: UNK, Unknown

REACTIONS (5)
  - Dyspnoea [Unknown]
  - Paraesthesia [Unknown]
  - Pain in extremity [Unknown]
  - Arthralgia [Unknown]
  - Incorrect drug administration duration [Unknown]
